FAERS Safety Report 7382984-5 (Version None)
Quarter: 2011Q1

REPORT INFORMATION
  Report Type: 
  Country: None (occurrence: None)
  Receive Date: 20110328
  Receipt Date: 20110328
  Transmission Date: 20110831
  Serious: Yes (Other)
  Sender: FDA-Public Use
  Company Number: None

PATIENT
  Age: 56 Year
  Sex: Female
  Weight: 61.2356 kg

DRUGS (1)
  1. PREMARIN [Suspect]
     Indication: HORMONE THERAPY
     Dosage: 1 TABLET ONCE DAILY
     Dates: start: 20110226, end: 20110313

REACTIONS (8)
  - ALOPECIA [None]
  - HOT FLUSH [None]
  - NIGHT SWEATS [None]
  - MOOD SWINGS [None]
  - MIGRAINE [None]
  - IRRITABILITY [None]
  - MALAISE [None]
  - PRESCRIPTION FORM TAMPERING [None]
